FAERS Safety Report 7144560-9 (Version None)
Quarter: 2010Q4

REPORT INFORMATION
  Report Type: 
  Country: None (occurrence: None)
  Receive Date: 20101208
  Receipt Date: 20090710
  Transmission Date: 20110411
  Serious: Yes (Death, Hospitalization)
  Sender: FDA-Public Use
  Company Number: US-ACTELION-A-US2008-20353

PATIENT

DRUGS (2)
  1. TRACLEER [Suspect]
     Indication: PULMONARY HYPERTENSION
     Dosage: UNK
     Route: 048
     Dates: start: 20031208
  2. OXYGEN [Concomitant]

REACTIONS (6)
  - BLOOD COUNT ABNORMAL [None]
  - DEATH [None]
  - DYSPNOEA [None]
  - FATIGUE [None]
  - MALAISE [None]
  - PULMONARY OEDEMA [None]
